FAERS Safety Report 12616878 (Version 2)
Quarter: 2016Q3

REPORT INFORMATION
  Report Type: Spontaneous
  Country: US (occurrence: US)
  Receive Date: 20160802
  Receipt Date: 20160804
  Transmission Date: 20161109
  Serious: Yes (Hospitalization, Other)
  Sender: FDA-Public Use
  Company Number: US-JNJFOC-20160719468

PATIENT
  Age: 37 Year
  Sex: Female
  Weight: 57 kg

DRUGS (3)
  1. ACETAMINOPHEN. [Suspect]
     Active Substance: ACETAMINOPHEN
     Route: 065
  2. IBUPROFEN. [Concomitant]
     Active Substance: IBUPROFEN
     Indication: PRODUCT USED FOR UNKNOWN INDICATION
     Dosage: 30 DAYS
     Route: 065
     Dates: end: 20000409
  3. ACETAMINOPHEN. [Suspect]
     Active Substance: ACETAMINOPHEN
     Indication: PRODUCT USED FOR UNKNOWN INDICATION
     Dosage: (TOTAL DOSE 12000 MG) CHRONIC USE 3 DAYS, 4 G FOR 3 DAYS
     Route: 065
     Dates: end: 20000413

REACTIONS (2)
  - Overdose [Recovering/Resolving]
  - Acute hepatic failure [Recovering/Resolving]
